FAERS Safety Report 24754712 (Version 1)
Quarter: 2024Q4

REPORT INFORMATION
  Report Type: Spontaneous
  Country: US (occurrence: US)
  Receive Date: 20241219
  Receipt Date: 20241219
  Transmission Date: 20250114
  Serious: Yes (Other)
  Sender: VERTEX
  Company Number: US-VERTEX PHARMACEUTICALS-2024-019478

PATIENT
  Sex: Male

DRUGS (1)
  1. TRIKAFTA [Suspect]
     Active Substance: ELEXACAFTOR\IVACAFTOR\TEZACAFTOR
     Indication: Cystic fibrosis
     Dosage: NORMAL DOSE
     Route: 048
     Dates: start: 2019

REACTIONS (8)
  - Suicidal ideation [Unknown]
  - Anxiety [Unknown]
  - Insomnia [Unknown]
  - Restless legs syndrome [Recovered/Resolved]
  - Indifference [Unknown]
  - Cognitive disorder [Unknown]
  - Stress [Unknown]
  - Gait disturbance [Recovered/Resolved]

NARRATIVE: CASE EVENT DATE: 20200101
